FAERS Safety Report 11350092 (Version 1)
Quarter: 2015Q3

REPORT INFORMATION
  Report Type: Spontaneous
  Country: US (occurrence: None)
  Receive Date: 20150709
  Receipt Date: 20150709
  Transmission Date: 20151125
  Serious: Yes (Other)
  Sender: FDA-Public Use
  Company Number: PHEH2015US005570

PATIENT

DRUGS (2)
  1. GLEEVEC [Suspect]
     Active Substance: IMATINIB MESYLATE
     Indication: CHRONIC MYELOID LEUKAEMIA
     Dosage: 400 MG ON M, W AND F AND 200 MG ON T AND TH, UNKNOWN
  2. GLEEVEC [Suspect]
     Active Substance: IMATINIB MESYLATE
     Indication: PHILADELPHIA CHROMOSOME POSITIVE
     Dosage: 400 MG ON M, W AND F AND 200 MG ON T AND TH, UNKNOWN

REACTIONS (1)
  - Neutropenia [None]
